FAERS Safety Report 5154220-1 (Version None)
Quarter: 2006Q4

REPORT INFORMATION
  Report Type: 
  Country: None (occurrence: None)
  Receive Date: 20061114
  Receipt Date: 20061030
  Transmission Date: 20070319
  Serious: Yes (Other)
  Sender: FDA-Public Use
  Company Number: GXKR2006GB06782

PATIENT
  Age: 71 Year
  Sex: Female
  Weight: 87 kg

DRUGS (11)
  1. OMEPRAZOLE [Suspect]
     Indication: HIATUS HERNIA
     Dosage: 10 MG, ORAL
     Route: 048
     Dates: start: 20060710, end: 20061006
  2. ACYCLOVIR [Concomitant]
  3. ANASTROZOLE [Concomitant]
  4. ISPAGHULA HUSK (PLANTAGO OVATA HUSK) [Concomitant]
  5. LAMISIL [Concomitant]
  6. LEVOTHYROXINE SODIUM [Concomitant]
  7. MOMETASONE FUROATE [Concomitant]
  8. PEPPERMINT (METHA X PIPERITA) [Concomitant]
  9. RANITIDINE [Concomitant]
  10. REPLENS (CARBOMER, GLYCEROL, PARAFFIN, LIQUID, POLYCARBOPHIL) [Concomitant]
  11. XYLOCAINE [Concomitant]

REACTIONS (1)
  - BREAST ENLARGEMENT [None]
